FAERS Safety Report 4677041-2 (Version None)
Quarter: 2005Q2

REPORT INFORMATION
  Report Type: 
  Country: None (occurrence: None)
  Receive Date: 20050525
  Receipt Date: 20050202
  Transmission Date: 20051028
  Serious: No
  Sender: FDA-Public Use
  Company Number: SU-2005-003066

PATIENT
  Age: 49 Year
  Sex: Male

DRUGS (3)
  1. BENICAR [Suspect]
     Dosage: 20 MG QD PO
     Route: 048
     Dates: start: 20041101
  2. VYTORIN [Concomitant]
  3. PRILOSEC [Concomitant]

REACTIONS (2)
  - COELIAC DISEASE [None]
  - DERMATITIS HERPETIFORMIS [None]
